FAERS Safety Report 8917132 (Version 1)
Quarter: 2012Q4

REPORT INFORMATION
  Report Type: 
  Country: US (occurrence: US)
  Receive Date: 20121120
  Receipt Date: 20121120
  Transmission Date: 20130627
  Serious: Yes (Hospitalization)
  Sender: FDA-Public Use
  Company Number: PHEH2012US022530

PATIENT
  Sex: Female

DRUGS (5)
  1. TEGRETOL [Suspect]
  2. GEODON [Suspect]
  3. NEXUM [Concomitant]
  4. PROVENTIL INHALER [Concomitant]
  5. MELATONINA [Concomitant]

REACTIONS (2)
  - Convulsion [Unknown]
  - Drug hypersensitivity [Unknown]
